FAERS Safety Report 10959318 (Version 1)
Quarter: 2015Q1

REPORT INFORMATION
  Report Type: Spontaneous
  Country: US (occurrence: US)
  Receive Date: 20150327
  Receipt Date: 20150327
  Transmission Date: 20150721
  Serious: Yes (Death)
  Sender: FDA-Public Use
  Company Number: US-CIPLA LTD.-2015US02437

PATIENT

DRUGS (8)
  1. DIAZEPAM. [Suspect]
     Active Substance: DIAZEPAM
  2. CITALOPRAM [Suspect]
     Active Substance: CITALOPRAM HYDROBROMIDE
  3. TRAZODONE [Suspect]
     Active Substance: TRAZODONE HYDROCHLORIDE
  4. ETHANOL [Suspect]
     Active Substance: ALCOHOL
  5. QUININE [Suspect]
     Active Substance: QUININE
  6. ALPRAZOLAM. [Suspect]
     Active Substance: ALPRAZOLAM
  7. HEROIN [Suspect]
     Active Substance: DIACETYLMORPHINE
  8. PAROXETINE [Suspect]
     Active Substance: PAROXETINE\PAROXETINE HYDROCHLORIDE

REACTIONS (1)
  - Drug abuse [Fatal]
